FAERS Safety Report 4478520-3 (Version None)
Quarter: 2004Q4

REPORT INFORMATION
  Report Type: 
  Country: None (occurrence: None)
  Receive Date: 20041018
  Receipt Date: 20041018
  Transmission Date: 20050328
  Serious: Yes (Other)
  Sender: FDA-Public Use
  Company Number: None

PATIENT
  Age: 54 Year
  Sex: Male
  Weight: 86 kg

DRUGS (21)
  1. VIOXX [Suspect]
     Indication: ARTHRALGIA
     Dosage: 50 MG PO DAILY
     Route: 048
     Dates: start: 20040710, end: 20040718
  2. INSULIN [Concomitant]
  3. PAROXETINE [Concomitant]
  4. METFORMIN HCL [Concomitant]
  5. TRAZODONE HCL [Concomitant]
  6. EPOGEN [Concomitant]
  7. ENOXAPARIN SODIUM [Concomitant]
  8. CYCLOBENZAPRINE HCL [Concomitant]
  9. GABAPENTIN [Concomitant]
  10. LOPERAMIDE HCL [Concomitant]
  11. LANSOPRAZOLE [Concomitant]
  12. FERROUS SULFATE TAB [Concomitant]
  13. MAGNESIUM OXIDE [Concomitant]
  14. PIOGLITAZONE HCL [Concomitant]
  15. MULTI-VITAMIN [Concomitant]
  16. OXYCODONE [Concomitant]
  17. BACLOFEN [Concomitant]
  18. METOCLOPRAMIDE [Concomitant]
  19. OXYBUTYNIN [Concomitant]
  20. ONDANSETRON [Concomitant]
  21. ACETAMINOPHEN (PRN) [Concomitant]

REACTIONS (2)
  - BLOOD CREATININE INCREASED [None]
  - HYPERKALAEMIA [None]
